FAERS Safety Report 8770219 (Version 1)
Quarter: 2012Q4

REPORT INFORMATION
  Report Type: 
  Country: AU (occurrence: AU)
  Receive Date: 20120906
  Receipt Date: 20120906
  Transmission Date: 20130627
  Serious: Yes (Hospitalization)
  Sender: FDA-Public Use
  Company Number: AU-ASTRAZENECA-2012SE65382

PATIENT
  Age: 2 Day
  Sex: Male

DRUGS (1)
  1. SEROQUEL [Suspect]
     Route: 064

REACTIONS (3)
  - Neonatal respiratory distress syndrome [Recovered/Resolved]
  - Neonatal disorder [Unknown]
  - Restlessness [Unknown]
